FAERS Safety Report 9464333 (Version 2)
Quarter: 2013Q3

REPORT INFORMATION
  Report Type: Report from Study
  Country: CA (occurrence: CA)
  Receive Date: 20130819
  Receipt Date: 20130820
  Transmission Date: 20140515
  Serious: Yes (Other)
  Sender: FDA-Public Use
  Company Number: CA-ROCHE-1263012

PATIENT
  Age: 66 Year
  Sex: Female

DRUGS (15)
  1. ACTEMRA [Suspect]
     Indication: RHEUMATOID ARTHRITIS
     Route: 042
     Dates: start: 20120502
  2. ACTEMRA [Suspect]
     Route: 042
     Dates: start: 20120801
  3. ACTEMRA [Suspect]
     Route: 042
     Dates: start: 20120829
  4. ACTEMRA [Suspect]
     Route: 042
     Dates: start: 20130410
  5. METHOTREXATE [Concomitant]
  6. ADVIL [Concomitant]
  7. LEVOTHYROXINE [Concomitant]
  8. HYDROCHLOROTHIAZIDE [Concomitant]
  9. ENALAPRIL [Concomitant]
  10. PROZAC [Concomitant]
  11. VENTOLIN [Concomitant]
     Route: 065
  12. AZOPT [Concomitant]
  13. NEXIUM [Concomitant]
  14. TRAZODONE [Concomitant]
  15. NASONEX [Concomitant]

REACTIONS (1)
  - Dermal cyst [Recovering/Resolving]
